FAERS Safety Report 5096659-9 (Version None)
Quarter: 2006Q3

REPORT INFORMATION
  Report Type: 
  Country: None (occurrence: None)
  Receive Date: 20060905
  Receipt Date: 20060523
  Transmission Date: 20061208
  Serious: Yes (Other)
  Sender: FDA-Public Use
  Company Number: ES-MERCK-0605ESP00037

PATIENT
  Age: 17 Year
  Sex: Female

DRUGS (1)
  1. MAXALT [Suspect]
     Indication: MIGRAINE
     Route: 048
     Dates: start: 20060101, end: 20060101

REACTIONS (2)
  - DYSPHAGIA [None]
  - PRESCRIBED OVERDOSE [None]
